FAERS Safety Report 10071973 (Version 1)
Quarter: 2014Q1

REPORT INFORMATION
  Report Type: Spontaneous
  Country: US (occurrence: None)
  Receive Date: 20140312
  Receipt Date: 20140312
  Transmission Date: 20141002
  Serious: Yes (Hospitalization)
  Sender: FDA-Public Use
  Company Number: 2013SA100825

PATIENT
  Age: 60 Year
  Sex: Female

DRUGS (1)
  1. AUBAGIO [Suspect]
     Indication: MULTIPLE SCLEROSIS
     Route: 048
     Dates: start: 20130224

REACTIONS (8)
  - Fall [None]
  - Wound [None]
  - Tooth disorder [None]
  - Tinea pedis [None]
  - Head injury [None]
  - Drug dose omission [None]
  - Drug effect decreased [None]
  - Wound infection staphylococcal [None]
